FAERS Safety Report 7615641-8 (Version None)
Quarter: 2011Q3

REPORT INFORMATION
  Report Type: 
  Country: None (occurrence: None)
  Receive Date: 20110718
  Receipt Date: 20110718
  Transmission Date: 20111222
  Serious: Yes (Other)
  Sender: FDA-Public Use
  Company Number: None

PATIENT
  Sex: Male

DRUGS (2)
  1. CVS ALCOHOL PADS/SWABS/WIPES [Suspect]
     Indication: INJECTION
     Dosage: 2-3/DAY-INJECTIONS SITE
  2. INSULIN [Concomitant]

REACTIONS (6)
  - INJECTION SITE PAIN [None]
  - IMPAIRED DRIVING ABILITY [None]
  - LOSS OF EMPLOYMENT [None]
  - WEIGHT DECREASED [None]
  - CONSTIPATION [None]
  - PRODUCT QUALITY ISSUE [None]
